FAERS Safety Report 20940252 (Version 2)
Quarter: 2022Q2

REPORT INFORMATION
  Report Type: Spontaneous
  Country: US (occurrence: US)
  Receive Date: 20220609
  Receipt Date: 20220625
  Transmission Date: 20220721
  Serious: Yes (Hospitalization)
  Sender: FDA-Public Use
  Company Number: US-TEVA-2022-US-2043647

PATIENT
  Age: 15 Year
  Sex: Female

DRUGS (8)
  1. CLONIDINE [Suspect]
     Active Substance: CLONIDINE
     Indication: Erythromelalgia
     Route: 065
  2. DULOXETINE [Suspect]
     Active Substance: DULOXETINE
     Indication: Erythromelalgia
     Route: 065
  3. TRAZODONE [Suspect]
     Active Substance: TRAZODONE HYDROCHLORIDE
     Indication: Erythromelalgia
     Route: 065
  4. GABAPENTIN [Suspect]
     Active Substance: GABAPENTIN
     Indication: Erythromelalgia
     Route: 065
  5. KETAMINE [Suspect]
     Active Substance: KETAMINE
     Indication: Erythromelalgia
     Dosage: THE PATIENT RECEIVED IV KETAMINE INFUSION 6-12MG/H OR 0.1-0.2MG/KG/H
     Route: 041
  6. MAGNESIUM [Suspect]
     Active Substance: MAGNESIUM
     Indication: Erythromelalgia
     Route: 065
  7. SERTRALINE [Suspect]
     Active Substance: SERTRALINE HYDROCHLORIDE
     Indication: Erythromelalgia
     Route: 065
  8. CLONIDINE [Suspect]
     Active Substance: CLONIDINE
     Indication: Erythromelalgia
     Route: 065

REACTIONS (4)
  - Gait disturbance [Unknown]
  - Dizziness [Unknown]
  - Dysarthria [Unknown]
  - Drug ineffective [Unknown]
